FAERS Safety Report 8090199-0 (Version None)
Quarter: 2012Q1

REPORT INFORMATION
  Report Type: 
  Country: None (occurrence: None)
  Receive Date: 20120129
  Receipt Date: 20111003
  Transmission Date: 20120608
  Serious: No
  Sender: FDA-Public Use
  Company Number: US-ABBOTT-11P-163-0860127-00

PATIENT
  Sex: Female
  Weight: 109.87 kg

DRUGS (15)
  1. PROZAC [Concomitant]
     Indication: NERVOUSNESS
  2. HUMIRA [Suspect]
     Indication: RHEUMATOID ARTHRITIS
     Dates: start: 20061111, end: 20110825
  3. LISINOPRIL [Concomitant]
     Indication: HYPERTENSION
  4. CARVEDILOL [Concomitant]
     Indication: HYPERTENSION
  5. LASIX [Concomitant]
     Indication: RHEUMATOID ARTHRITIS
  6. VERAPAMIL [Concomitant]
     Indication: HYPERTENSION
  7. ASPIRIN [Concomitant]
     Indication: PROPHYLAXIS
  8. LASIX [Concomitant]
     Indication: FLUID RETENTION
  9. TRAZODONE HCL [Concomitant]
     Indication: INSOMNIA
  10. PLAQUENIL [Concomitant]
     Indication: RHEUMATOID ARTHRITIS
  11. PROZAC [Concomitant]
     Indication: DEPRESSION
  12. METHOTREXATE [Concomitant]
     Indication: RHEUMATOID ARTHRITIS
  13. NITROGLYCERIN [Concomitant]
     Indication: CHEST PAIN
     Route: 060
  14. FOLIC ACID [Concomitant]
     Indication: VITAMIN SUPPLEMENTATION
  15. AZULFIDINE [Concomitant]
     Indication: RHEUMATOID ARTHRITIS

REACTIONS (6)
  - NASOPHARYNGITIS [None]
  - PAIN [None]
  - LARYNGITIS [None]
  - PNEUMONIA [None]
  - ARTHRITIS [None]
  - COUGH [None]
